FAERS Safety Report 7290329-4 (Version None)
Quarter: 2011Q1

REPORT INFORMATION
  Report Type: 
  Country: None (occurrence: None)
  Receive Date: 20110214
  Receipt Date: 20110204
  Transmission Date: 20110831
  Serious: Yes (Other)
  Sender: FDA-Public Use
  Company Number: PHEH2008US11032

PATIENT
  Sex: Male

DRUGS (2)
  1. TRILEPTAL [Suspect]
     Indication: COMPLEX PARTIAL SEIZURES
     Dosage: 600 MG, BID
  2. TRILEPTAL [Suspect]
     Dosage: 1200 MG, DAILY

REACTIONS (3)
  - LENTIGO MALIGNA STAGE UNSPECIFIED [None]
  - RASH [None]
  - STOMATITIS [None]
